FAERS Safety Report 7290042-3 (Version None)
Quarter: 2011Q1

REPORT INFORMATION
  Report Type: 
  Country: None (occurrence: None)
  Receive Date: 20110214
  Receipt Date: 20110131
  Transmission Date: 20110831
  Serious: Yes (Hospitalization, Other)
  Sender: FDA-Public Use
  Company Number: US-CELGENEUS-163-21880-10111989

PATIENT
  Sex: Male

DRUGS (8)
  1. GAMMAGARD [Concomitant]
     Route: 051
     Dates: start: 20101220
  2. REVLIMID [Suspect]
     Route: 048
     Dates: start: 20100930
  3. VALCYTE [Concomitant]
     Indication: CYTOMEGALOVIRUS INFECTION
     Route: 048
     Dates: start: 20101216
  4. CIPRO [Concomitant]
     Indication: FEBRILE NEUTROPENIA
     Route: 065
  5. ARANESP [Concomitant]
     Route: 058
     Dates: start: 20100625
  6. NEUPOGEN [Concomitant]
     Route: 058
     Dates: start: 20101018
  7. REVLIMID [Suspect]
     Route: 048
     Dates: start: 20101124, end: 20101205
  8. NPLATE [Concomitant]
     Indication: THROMBOCYTOPENIA
     Route: 030
     Dates: start: 20101019

REACTIONS (6)
  - PRESYNCOPE [None]
  - PNEUMONIA [None]
  - CARDIAC DISORDER [None]
  - FATIGUE [None]
  - PANCYTOPENIA [None]
  - FEBRILE NEUTROPENIA [None]
